FAERS Safety Report 16899171 (Version 9)
Quarter: 2021Q3

REPORT INFORMATION
  Report Type: Spontaneous
  Country: US (occurrence: US)
  Receive Date: 20191009
  Receipt Date: 20210824
  Transmission Date: 20211014
  Serious: Yes (Other)
  Sender: FDA-Public Use
  Company Number: US-PFIZER INC-2019437015

PATIENT
  Age: 68 Year
  Sex: Female
  Weight: 72.57 kg

DRUGS (3)
  1. LYRICA [Suspect]
     Active Substance: PREGABALIN
     Indication: FIBROMYALGIA
     Dosage: 75 MG, 2X/DAY
     Route: 048
  2. LYRICA [Suspect]
     Active Substance: PREGABALIN
     Dosage: 75 MG, 1X/DAY
     Route: 048
  3. ATROPINE SULFATE. [Concomitant]
     Active Substance: ATROPINE SULFATE
     Dosage: UNK

REACTIONS (20)
  - Loss of consciousness [Unknown]
  - Fall [Unknown]
  - Blindness unilateral [Unknown]
  - Chronic obstructive pulmonary disease [Unknown]
  - Visual field defect [Unknown]
  - Cerebrovascular accident [Recovered/Resolved]
  - Aneurysm [Unknown]
  - Hypotension [Unknown]
  - Device breakage [Unknown]
  - Aphasia [Unknown]
  - Mobility decreased [Unknown]
  - Intentional product use issue [Unknown]
  - Pain in extremity [Unknown]
  - Asthenia [Unknown]
  - Malaise [Unknown]
  - Myocardial infarction [Unknown]
  - Insomnia [Unknown]
  - Bursitis [Unknown]
  - Complication associated with device [Unknown]
  - Pain [Unknown]
